FAERS Safety Report 4738273-8 (Version None)
Quarter: 2005Q3

REPORT INFORMATION
  Report Type: 
  Country: None (occurrence: None)
  Receive Date: 20050808
  Receipt Date: 20050808
  Transmission Date: 20060218
  Serious: Yes (Other)
  Sender: FDA-Public Use
  Company Number: None

PATIENT

DRUGS (4)
  1. DILTIAZEM HCL EXTENDED-RELEASE [Suspect]
     Dosage: CAPSULE, EXTENDED RELEASE
  2. DILTIAZEM HCL EXTENDED -RELEASE [Suspect]
     Dosage: CAPSULE, EXTENDED RELEASE
  3. DILTIAZEM HCL EXTENDED -RELEASE [Suspect]
     Dosage: CAPSULE, EXTENDED RELEASE
  4. TIAZAC [Suspect]
     Dosage: CAPSULE, EXTENDED RELEASE

REACTIONS (2)
  - MEDICATION ERROR [None]
  - POOR QUALITY DRUG ADMINISTERED [None]
